FAERS Safety Report 8826873 (Version 2)
Quarter: 2012Q4

REPORT INFORMATION
  Report Type: 
  Country: US (occurrence: US)
  Receive Date: 20121005
  Receipt Date: 20121105
  Transmission Date: 20130627
  Serious: Yes (Other)
  Sender: FDA-Public Use
  Company Number: US-ALEXION PHARMACEUTICALS INC.-A201201878

PATIENT
  Age: 6 Year
  Sex: Male
  Weight: 19 kg

DRUGS (5)
  1. SOLIRIS 300MG [Suspect]
     Indication: HAEMOLYTIC URAEMIC SYNDROME
     Dosage: 600 mg, UNK
     Route: 042
     Dates: start: 20120925, end: 20120926
  2. SOLIRIS 300MG [Suspect]
     Dosage: 300 mg, q2w
     Route: 042
  3. AMLODIPINE [Concomitant]
     Indication: BLOOD PRESSURE
     Dosage: 215 mg, qd
     Route: 048
  4. KEPPRA [Concomitant]
     Indication: CONVULSION
     Dosage: 415 mg, bid
     Route: 048
  5. MULTIVITAMIN [Concomitant]
     Dosage: UNK
     Route: 048

REACTIONS (2)
  - Herpes simplex [Recovered/Resolved]
  - Candidiasis [Recovered/Resolved]
